FAERS Safety Report 5012063-3 (Version None)
Quarter: 2006Q2

REPORT INFORMATION
  Report Type: 
  Country: None (occurrence: None)
  Receive Date: 20060526
  Receipt Date: 20060518
  Transmission Date: 20061013
  Serious: Yes (Other)
  Sender: FDA-Public Use
  Company Number: 2006-DE-02136GD

PATIENT
  Age: 34 Year
  Sex: Female

DRUGS (5)
  1. ZIDOVUDINE [Suspect]
     Indication: HIV INFECTION
     Route: 065
  2. LAMIVUDINE [Suspect]
     Indication: HIV INFECTION
     Route: 065
  3. NEVIRAPINE [Suspect]
     Indication: HIV INFECTION
     Route: 065
  4. LOPINAVIR + RITONAVIR [Concomitant]
  5. CIDOFOVIR [Concomitant]
     Route: 042

REACTIONS (8)
  - CONDITION AGGRAVATED [None]
  - DYSARTHRIA [None]
  - GRAND MAL CONVULSION [None]
  - HEADACHE [None]
  - HEMIPARESIS [None]
  - IMMUNE RECONSTITUTION SYNDROME [None]
  - INFLAMMATION [None]
  - MOVEMENT DISORDER [None]
